FAERS Safety Report 5056661-X (Version None)
Quarter: 2006Q2

REPORT INFORMATION
  Report Type: 
  Country: None (occurrence: None)
  Receive Date: 20060616
  Receipt Date: 20060516
  Transmission Date: 20061013
  Serious: No
  Sender: FDA-Public Use
  Company Number: 225217

PATIENT
  Age: 50 Year
  Sex: Male

DRUGS (3)
  1. AVASTIN [Suspect]
     Indication: LUNG NEOPLASM MALIGNANT
     Dates: start: 20040315, end: 20050801
  2. CARBOPLATIN [Concomitant]
  3. TAXOL [Concomitant]

REACTIONS (2)
  - FATIGUE [None]
  - NEURALGIA [None]
